FAERS Safety Report 7880992-9 (Version None)
Quarter: 2011Q4

REPORT INFORMATION
  Report Type: 
  Country: None (occurrence: None)
  Receive Date: 20111101
  Receipt Date: 20111024
  Transmission Date: 20120403
  Serious: Yes (Hospitalization)
  Sender: FDA-Public Use
  Company Number: US-MERCK-1104USA03724

PATIENT
  Age: 60 Year
  Sex: Female
  Weight: 75 kg

DRUGS (9)
  1. FOSAMAX [Suspect]
     Indication: OSTEOPOROSIS
     Route: 048
     Dates: start: 19980101, end: 20071201
  2. [THERAPY UNSPECIFIED] [Concomitant]
     Indication: RHEUMATOID ARTHRITIS
     Route: 065
  3. FOSAMAX [Suspect]
     Indication: MUSCLE SPASMS
     Route: 048
     Dates: start: 19980101, end: 20071201
  4. IRON (UNSPECIFIED) [Concomitant]
     Route: 065
     Dates: start: 19900101
  5. MAGNESIUM (UNSPECIFIED) [Concomitant]
     Route: 065
     Dates: start: 19900101
  6. VITAMINS (UNSPECIFIED) [Concomitant]
     Route: 065
     Dates: start: 19900101
  7. CALCIUM (UNSPECIFIED) [Concomitant]
     Route: 065
     Dates: start: 19900101
  8. POTASSIUM (UNSPECIFIED) [Concomitant]
     Route: 065
     Dates: start: 19900101
  9. RECLAST [Concomitant]
     Indication: OSTEOPOROSIS
     Route: 051
     Dates: start: 20080201

REACTIONS (30)
  - ARTHRALGIA [None]
  - SPINAL COLUMN STENOSIS [None]
  - LOCALISED INFECTION [None]
  - INTERVERTEBRAL DISC DEGENERATION [None]
  - FEMUR FRACTURE [None]
  - ATELECTASIS [None]
  - SECONDARY HYPOTHYROIDISM [None]
  - ADVERSE DRUG REACTION [None]
  - HYPERTENSION [None]
  - OSTEOARTHRITIS [None]
  - CELLULITIS [None]
  - PAIN IN EXTREMITY [None]
  - DEPRESSION [None]
  - ANXIETY [None]
  - ANAEMIA POSTOPERATIVE [None]
  - BUNION [None]
  - HYPERKERATOSIS [None]
  - WHITE BLOOD CELL COUNT INCREASED [None]
  - URINARY TRACT INFECTION [None]
  - ARTHROPATHY [None]
  - NAUSEA [None]
  - ABDOMINAL DISCOMFORT [None]
  - SKIN MASS [None]
  - RHEUMATOID ARTHRITIS [None]
  - FOOT DEFORMITY [None]
  - EXOSTOSIS [None]
  - NEUROMA [None]
  - MYOPATHY [None]
  - MENISCUS LESION [None]
  - SCIATICA [None]
